FAERS Safety Report 9411440 (Version 1)
Quarter: 2013Q3

REPORT INFORMATION
  Report Type: Spontaneous
  Country: TR (occurrence: TR)
  Receive Date: 20130722
  Receipt Date: 20130722
  Transmission Date: 20140515
  Serious: Yes (Hospitalization)
  Sender: FDA-Public Use
  Company Number: PHHY2013TR076067

PATIENT
  Age: 20 Year
  Sex: Female

DRUGS (1)
  1. METFORMIN [Suspect]
     Indication: SUICIDE ATTEMPT
     Dosage: 40 G, UNK

REACTIONS (2)
  - Suicide attempt [Unknown]
  - Overdose [Unknown]
